FAERS Safety Report 7958797-X (Version None)
Quarter: 2011Q4

REPORT INFORMATION
  Report Type: 
  Country: None (occurrence: None)
  Receive Date: 20111206
  Receipt Date: 20111201
  Transmission Date: 20120403
  Serious: Yes (Other)
  Sender: FDA-Public Use
  Company Number: US-AMGEN-USASP2010007154

PATIENT
  Age: 38 Year
  Sex: Female
  Weight: 77.052 kg

DRUGS (5)
  1. SYNTHROID [Concomitant]
     Indication: HYPOTHYROIDISM
     Dosage: 100 MUG, UNK
     Route: 048
     Dates: start: 20100824
  2. POTASSIUM ACETATE [Concomitant]
  3. PREDNISONE TAB [Concomitant]
     Indication: IDIOPATHIC THROMBOCYTOPENIC PURPURA
     Dosage: 50 MG, UNK
     Route: 048
     Dates: start: 20100915, end: 20110122
  4. NPLATE [Suspect]
     Indication: IDIOPATHIC THROMBOCYTOPENIC PURPURA
     Dosage: 250 MUG, QWK
     Dates: start: 20101215
  5. IRON [Concomitant]
     Indication: SUPPLEMENTATION THERAPY

REACTIONS (1)
  - LEUKOCYTOSIS [None]
